FAERS Safety Report 19292755 (Version 2)
Quarter: 2021Q2

REPORT INFORMATION
  Report Type: Spontaneous
  Country: US (occurrence: US)
  Receive Date: 20210524
  Receipt Date: 20210608
  Transmission Date: 20210717
  Serious: No
  Sender: FDA-Public Use
  Company Number: US-AMGEN-USASP2021078118

PATIENT
  Age: 62 Year
  Sex: Female

DRUGS (4)
  1. CORLANOR [Suspect]
     Active Substance: IVABRADINE HYDROCHLORIDE
     Dosage: DOSE INCREASED
     Route: 065
     Dates: end: 202104
  2. CORLANOR [Suspect]
     Active Substance: IVABRADINE HYDROCHLORIDE
     Dosage: UNK
     Route: 065
     Dates: start: 20210509
  3. CORLANOR [Suspect]
     Active Substance: IVABRADINE HYDROCHLORIDE
     Dosage: HALF A PILL TWICE A DAY FOR A WEEK
     Route: 065
     Dates: start: 2021
  4. CORLANOR [Suspect]
     Active Substance: IVABRADINE HYDROCHLORIDE
     Indication: HEART RATE INCREASED
     Dosage: 5 MILLIGRAM, BID
     Route: 065
     Dates: start: 202011, end: 202104

REACTIONS (3)
  - Heart rate increased [Unknown]
  - Off label use [Unknown]
  - Photopsia [Unknown]
